FAERS Safety Report 6165366-3 (Version None)
Quarter: 2009Q2

REPORT INFORMATION
  Report Type: 
  Country: None (occurrence: None)
  Receive Date: 20090423
  Receipt Date: 20090420
  Transmission Date: 20091009
  Serious: No
  Sender: FDA-Public Use
  Company Number: US-B.I. PHARMACEUTICALS,INC./RIDGEFIELD-2009-BP-04986BP

PATIENT
  Sex: Male

DRUGS (17)
  1. SPIRIVA [Suspect]
     Indication: ASTHMA
     Dosage: 18MCG
     Route: 055
     Dates: start: 20090415
  2. SPIRIVA [Suspect]
     Indication: COUGH
  3. SPIRIVA [Suspect]
     Indication: SEASONAL ALLERGY
  4. NEORAL [Concomitant]
     Indication: PROPHYLAXIS AGAINST TRANSPLANT REJECTION
     Route: 048
  5. CELLCEPT [Concomitant]
     Indication: PROPHYLAXIS AGAINST TRANSPLANT REJECTION
     Route: 048
  6. PREDNISONE [Concomitant]
     Indication: PROPHYLAXIS AGAINST TRANSPLANT REJECTION
     Route: 048
  7. LEVOXYL [Concomitant]
     Indication: THYROID DISORDER
     Route: 048
  8. CRESTOR [Concomitant]
     Indication: BLOOD CHOLESTEROL INCREASED
     Route: 048
  9. DIALYSIS VIT B [Concomitant]
     Indication: RENAL FAILURE
     Route: 048
  10. CLONIDINE [Concomitant]
     Indication: HYPERTENSION
     Route: 048
  11. ALDOMET [Concomitant]
     Indication: HYPERTENSION
     Route: 048
  12. NIFEDIPINE [Concomitant]
     Indication: HYPERTENSION
     Route: 048
  13. DOSTINEX [Concomitant]
     Indication: RENAL FAILURE
     Route: 048
  14. FOSLO [Concomitant]
     Route: 048
  15. ZYRTEC [Concomitant]
     Indication: SEASONAL ALLERGY
     Route: 048
  16. ASTELIN [Concomitant]
     Indication: SEASONAL ALLERGY
     Route: 045
  17. RHINOCORT [Concomitant]
     Indication: SEASONAL ALLERGY
     Route: 045

REACTIONS (2)
  - APNOEA [None]
  - DIZZINESS [None]
